FAERS Safety Report 13483779 (Version 1)
Quarter: 2017Q2

REPORT INFORMATION
  Report Type: Spontaneous
  Country: US (occurrence: US)
  Receive Date: 20170426
  Receipt Date: 20170426
  Transmission Date: 20170830
  Serious: Yes (Hospitalization)
  Sender: FDA-Public Use
  Company Number: US-ASTELLAS-2017US015273

PATIENT
  Age: 12 Year
  Sex: Male
  Weight: 37 kg

DRUGS (3)
  1. HYDROCORTISONE. [Suspect]
     Active Substance: HYDROCORTISONE
     Indication: ADRENAL SUPPRESSION
     Route: 065
     Dates: start: 20170213, end: 20170213
  2. TACROLIMUS. [Suspect]
     Active Substance: TACROLIMUS
     Indication: GRAFT VERSUS HOST DISEASE
     Dosage: 0.4 MG, TWICE DAILY
     Route: 065
     Dates: start: 20170210, end: 20170216
  3. TACROLIMUS. [Suspect]
     Active Substance: TACROLIMUS
     Dosage: 0.3 MG, TWICE DAILY
     Route: 065
     Dates: start: 20170217

REACTIONS (5)
  - Enterocolitis infectious [Unknown]
  - Hypovolaemia [Recovered/Resolved]
  - Vomiting [Unknown]
  - Dizziness [Recovering/Resolving]
  - Diarrhoea [Recovered/Resolved]

NARRATIVE: CASE EVENT DATE: 20170213
